FAERS Safety Report 7018378-1 (Version None)
Quarter: 2010Q3

REPORT INFORMATION
  Report Type: 
  Country: None (occurrence: None)
  Receive Date: 20100928
  Receipt Date: 20100916
  Transmission Date: 20110219
  Serious: Yes (Other)
  Sender: FDA-Public Use
  Company Number: PHHY2010US33994

PATIENT
  Sex: Male
  Weight: 108 kg

DRUGS (4)
  1. EXJADE [Suspect]
     Indication: MULTIPLE MYELOMA
     Dosage: 500 MG, QID
     Route: 048
     Dates: start: 20100517
  2. ACYCLOVIR SODIUM [Concomitant]
  3. ATENOLOL [Concomitant]
  4. PRILOSEC [Concomitant]

REACTIONS (6)
  - COLONOSCOPY [None]
  - COUGH [None]
  - DIARRHOEA [None]
  - PYREXIA [None]
  - RASH [None]
  - SPUTUM CULTURE POSITIVE [None]
